FAERS Safety Report 18840197 (Version 2)
Quarter: 2021Q1

REPORT INFORMATION
  Report Type: Spontaneous
  Country: US (occurrence: US)
  Receive Date: 20210203
  Receipt Date: 20210203
  Transmission Date: 20210419
  Serious: No
  Sender: FDA-Public Use
  Company Number: US-PFIZER INC-2015288383

PATIENT
  Age: 63 Year
  Sex: Female
  Weight: 64 kg

DRUGS (4)
  1. NAPROXEN. [Concomitant]
     Active Substance: NAPROXEN
     Indication: MIGRAINE
     Dosage: 220 MG, 1X/DAY
  2. RELPAX [Suspect]
     Active Substance: ELETRIPTAN HYDROBROMIDE
     Indication: MIGRAINE
     Dosage: 40 MG, 2?3 TIMES A WEEK
     Route: 048
     Dates: end: 2015
  3. IBUPROFEN. [Concomitant]
     Active Substance: IBUPROFEN
     Indication: MIGRAINE
     Dosage: 600 MG, UNK
  4. RELPAX [Suspect]
     Active Substance: ELETRIPTAN HYDROBROMIDE
     Indication: PAIN

REACTIONS (1)
  - Choking sensation [Unknown]
